FAERS Safety Report 7512593-6 (Version None)
Quarter: 2011Q2

REPORT INFORMATION
  Report Type: 
  Country: None (occurrence: None)
  Receive Date: 20110525
  Receipt Date: 20110525
  Transmission Date: 20111010
  Serious: Yes (Death)
  Sender: FDA-Public Use
  Company Number: None

PATIENT
  Age: 51 Year
  Sex: Male

DRUGS (8)
  1. LACTULOSE [Concomitant]
  2. DEXAMETHASONE [Concomitant]
  3. ASPIRIN [Concomitant]
  4. REVLIMID [Suspect]
     Indication: NON-HODGKIN'S LYMPHOMA
     Dosage: 25MG DAILY ORALLY
     Route: 048
     Dates: start: 20100601, end: 20100801
  5. GABAPENTIN [Concomitant]
  6. HALDOL [Concomitant]
  7. OMEPRAZOLE [Concomitant]
  8. COMPAZINE [Concomitant]

REACTIONS (1)
  - GENERAL PHYSICAL HEALTH DETERIORATION [None]
